FAERS Safety Report 5013589-9 (Version None)
Quarter: 2006Q2

REPORT INFORMATION
  Report Type: 
  Country: None (occurrence: None)
  Receive Date: 20060526
  Receipt Date: 20060526
  Transmission Date: 20061013
  Serious: No
  Sender: FDA-Public Use
  Company Number: None

PATIENT
  Age: 79 Year
  Sex: Female

DRUGS (2)
  1. VESICARE [Suspect]
     Dosage: TABLET
  2. VISICOL [Suspect]
     Dosage: TABLET

REACTIONS (10)
  - BLOOD PRESSURE INCREASED [None]
  - DIFFICULTY IN WALKING [None]
  - DISORIENTATION [None]
  - DRUG DISPENSING ERROR [None]
  - DRY MOUTH [None]
  - HEART RATE INCREASED [None]
  - MEDICATION ERROR [None]
  - OVERDOSE [None]
  - OXYGEN SATURATION DECREASED [None]
  - TREMOR [None]
